FAERS Safety Report 21214603 (Version 2)
Quarter: 2022Q4

REPORT INFORMATION
  Report Type: Spontaneous
  Country: ES (occurrence: ES)
  Receive Date: 20220816
  Receipt Date: 20221020
  Transmission Date: 20230112
  Serious: Yes (Other)
  Sender: FDA-Public Use
  Company Number: ES-CELGENE-144-20785-10042614

PATIENT
  Age: 27 Year
  Sex: Female

DRUGS (3)
  1. THALIDOMIDE [Suspect]
     Active Substance: THALIDOMIDE
     Indication: Product used for unknown indication
     Route: 050
     Dates: start: 200812, end: 201002
  2. THALIDOMIDE [Suspect]
     Active Substance: THALIDOMIDE
     Route: 050
     Dates: start: 201003
  3. THALIDOMIDE [Suspect]
     Active Substance: THALIDOMIDE
     Route: 050
     Dates: start: 20060412, end: 2008

REACTIONS (1)
  - Exposure via body fluid [Unknown]
